FAERS Safety Report 21850439 (Version 1)
Quarter: 2023Q1

REPORT INFORMATION
  Report Type: Spontaneous
  Country: US (occurrence: None)
  Receive Date: 20230111
  Receipt Date: 20230111
  Transmission Date: 20230417
  Serious: Yes (unspecified)
  Sender: FDA-Public Use
  Company Number: None

PATIENT
  Age: 44 Year
  Sex: Female
  Weight: 52.3 kg

DRUGS (1)
  1. FERRLECIT [Suspect]
     Active Substance: SODIUM FERRIC GLUCONATE COMPLEX
     Indication: Iron deficiency anaemia
     Dosage: OTHER FREQUENCY : AS NEEDED;?
     Route: 041
     Dates: start: 20220202

REACTIONS (2)
  - Abdominal pain upper [None]
  - Urticaria [None]

NARRATIVE: CASE EVENT DATE: 20221220
